FAERS Safety Report 17999158 (Version 1)
Quarter: 2020Q3

REPORT INFORMATION
  Report Type: Spontaneous
  Country: US (occurrence: US)
  Receive Date: 20200708
  Receipt Date: 20200708
  Transmission Date: 20201103
  Serious: Yes (Other)
  Sender: FDA-Public Use
  Company Number: None

PATIENT
  Age: 56 Year
  Sex: Female
  Weight: 66.4 kg

DRUGS (6)
  1. VERZENIO [Suspect]
     Active Substance: ABEMACICLIB
     Indication: BREAST CANCER
     Route: 048
     Dates: start: 20200520, end: 20200629
  2. FENTANYL 50MCG/HR [Concomitant]
     Active Substance: FENTANYL
  3. ACETAMINOPHEN 500MG [Concomitant]
     Active Substance: ACETAMINOPHEN
  4. HYDROCODONE?APAP 7.5?325MG [Concomitant]
  5. NITROFURATOIN 100MG [Concomitant]
  6. BUPROPION 100MG [Concomitant]
     Active Substance: BUPROPION

REACTIONS (3)
  - Weight decreased [None]
  - Diarrhoea [None]
  - Abdominal discomfort [None]

NARRATIVE: CASE EVENT DATE: 20200629
